FAERS Safety Report 14690402 (Version 1)
Quarter: 2018Q1

REPORT INFORMATION
  Report Type: Spontaneous
  Country: DE (occurrence: DE)
  Receive Date: 20180328
  Receipt Date: 20180328
  Transmission Date: 20180509
  Serious: Yes (Hospitalization)
  Sender: FDA-Public Use
  Company Number: PHHY2018DE051674

PATIENT
  Sex: Male

DRUGS (1)
  1. ENTRESTO [Suspect]
     Active Substance: SACUBITRIL\VALSARTAN
     Indication: PRODUCT USED FOR UNKNOWN INDICATION
     Dosage: UNK (LOW DOSE)
     Route: 065
     Dates: end: 2018

REACTIONS (5)
  - Dehydration [Recovering/Resolving]
  - Blood potassium increased [Recovering/Resolving]
  - Renal failure [Recovering/Resolving]
  - Diarrhoea [Recovering/Resolving]
  - Electrocardiogram change [Recovering/Resolving]
